FAERS Safety Report 22280241 (Version 1)
Quarter: 2023Q2

REPORT INFORMATION
  Report Type: Report from Study
  Country: US (occurrence: US)
  Receive Date: 20230503
  Receipt Date: 20230503
  Transmission Date: 20230722
  Serious: No
  Sender: FDA-Public Use
  Company Number: US-002147023-NVSC2023US098664

PATIENT
  Sex: Male
  Weight: 90.72 kg

DRUGS (2)
  1. TRIAMCINOLONE [Suspect]
     Active Substance: TRIAMCINOLONE
     Indication: Psoriasis
     Dosage: 0.1 %
     Route: 061
     Dates: start: 20220901
  2. AMLODIPINE [Suspect]
     Active Substance: AMLODIPINE BESYLATE
     Indication: Psoriasis
     Dosage: 5 MG
     Route: 048

REACTIONS (12)
  - Herpes zoster [Unknown]
  - Dermatitis [Unknown]
  - Xerosis [Unknown]
  - Dry skin [Unknown]
  - Actinic keratosis [Unknown]
  - Skin sensitisation [Unknown]
  - Skin irritation [Unknown]
  - Rash [Unknown]
  - Psoriasis [Unknown]
  - Blister [Unknown]
  - Skin erosion [Unknown]
  - Drug ineffective [Unknown]
